FAERS Safety Report 9931038 (Version 1)
Quarter: 2014Q1

REPORT INFORMATION
  Report Type: Report from Study
  Country: BR (occurrence: BR)
  Receive Date: 20140227
  Receipt Date: 20140227
  Transmission Date: 20141002
  Serious: Yes (Other)
  Sender: FDA-Public Use
  Company Number: PHHY2014BR022683

PATIENT
  Sex: Female
  Weight: 52 kg

DRUGS (5)
  1. TEGRETOL [Suspect]
     Dosage: UNK UKN, UNK
     Route: 048
  2. TEGRETOL [Suspect]
     Dosage: 200 MG, UNK
  3. TEGRETOL [Suspect]
     Dosage: 400 MG, UNK
  4. RIVOTRIL [Suspect]
     Dosage: UNK UKN, UNK
  5. ALENTHUS XR [Suspect]
     Dosage: UNK

REACTIONS (4)
  - Epilepsy [Not Recovered/Not Resolved]
  - Abnormal behaviour [Not Recovered/Not Resolved]
  - Memory impairment [Not Recovered/Not Resolved]
  - Somnolence [Not Recovered/Not Resolved]
